FAERS Safety Report 19689275 (Version 1)
Quarter: 2021Q3

REPORT INFORMATION
  Report Type: Spontaneous
  Country: US (occurrence: US)
  Receive Date: 20210812
  Receipt Date: 20210812
  Transmission Date: 20211014
  Serious: Yes (Hospitalization, Other)
  Sender: FDA-Public Use
  Company Number: US-LUPIN PHARMACEUTICALS INC.-2021-14370

PATIENT
  Age: 49 Year
  Sex: Female

DRUGS (14)
  1. FENTANYL. [Suspect]
     Active Substance: FENTANYL
     Indication: CENTRAL PAIN SYNDROME
     Dosage: RECEIVED 100 MICROG/HOUR EVERY 48 HOURS
     Route: 062
  2. DULOXETINE. [Suspect]
     Active Substance: DULOXETINE
     Indication: CENTRAL PAIN SYNDROME
     Dosage: 60 MILLIGRAM, BID
     Route: 065
  3. AMITRIPTYLINE [Suspect]
     Active Substance: AMITRIPTYLINE
     Indication: CENTRAL PAIN SYNDROME
     Dosage: AT BEDTIME
     Route: 065
  4. KETAMINE [Concomitant]
     Active Substance: KETAMINE
     Dosage: 30 MILLIGRAM, TID
     Route: 048
     Dates: start: 2019
  5. OXYCODONE [Suspect]
     Active Substance: OXYCODONE
     Dosage: UNK (DOSE DECREASED)
     Route: 065
  6. KETAMINE [Concomitant]
     Active Substance: KETAMINE
     Dosage: 40 MILLIGRAM, TID
     Route: 048
     Dates: start: 2019
  7. APIXABAN [Concomitant]
     Active Substance: APIXABAN
     Indication: PULMONARY EMBOLISM
     Dosage: 5 MILLIGRAM, BID
     Route: 065
  8. KETAMINE [Concomitant]
     Active Substance: KETAMINE
     Dosage: 50 MILLIGRAM, TID
     Route: 048
     Dates: start: 2019
  9. PREGABALIN. [Suspect]
     Active Substance: PREGABALIN
     Indication: CENTRAL PAIN SYNDROME
     Dosage: 225 MILLIGRAM, QD
     Route: 065
  10. ALPRAZOLAM. [Suspect]
     Active Substance: ALPRAZOLAM
     Indication: CENTRAL PAIN SYNDROME
     Dosage: 1 MILLIGRAM, BID
     Route: 065
  11. BACLOFEN. [Suspect]
     Active Substance: BACLOFEN
     Indication: CENTRAL PAIN SYNDROME
     Dosage: 5 MILLIGRAM, QD
     Route: 065
  12. FENTANYL. [Suspect]
     Active Substance: FENTANYL
     Dosage: RECEIVED 25 MICROG/HOUR EVERY 72 HOURS
     Route: 062
  13. KETAMINE [Concomitant]
     Active Substance: KETAMINE
     Indication: CENTRAL PAIN SYNDROME
     Dosage: 20 MILLIGRAM, TID
     Route: 048
     Dates: start: 20190725
  14. OXYCODONE [Suspect]
     Active Substance: OXYCODONE
     Indication: CENTRAL PAIN SYNDROME
     Dosage: 30 MILLIGRAM, PRN (4 HRS)
     Route: 065

REACTIONS (6)
  - Fatigue [Recovering/Resolving]
  - Loss of personal independence in daily activities [Recovering/Resolving]
  - Hyperaesthesia [Unknown]
  - Treatment failure [Unknown]
  - Sedation [Unknown]
  - Constipation [Unknown]
